FAERS Safety Report 7516064-2 (Version None)
Quarter: 2011Q2

REPORT INFORMATION
  Report Type: 
  Country: None (occurrence: None)
  Receive Date: 20110601
  Receipt Date: 20110519
  Transmission Date: 20111010
  Serious: Yes (Death, Disabling)
  Sender: FDA-Public Use
  Company Number: ES-ACTELION-A-CH2010-41869

PATIENT
  Sex: Female
  Weight: 63 kg

DRUGS (1)
  1. ZAVESCA [Suspect]
     Indication: GAUCHER'S DISEASE
     Dosage: 100 MG, TID
     Route: 048
     Dates: start: 20040401, end: 20041015

REACTIONS (3)
  - DIARRHOEA [None]
  - MYOCARDIAL INFARCTION [None]
  - GASTROINTESTINAL DISORDER [None]
